FAERS Safety Report 10618940 (Version 1)
Quarter: 2014Q4

REPORT INFORMATION
  Report Type: Spontaneous
  Country: SE (occurrence: None)
  Receive Date: 20141126
  Receipt Date: 20141126
  Transmission Date: 20150529
  Serious: Yes (Hospitalization)
  Sender: FDA-Public Use
  Company Number: IMP_08228_2014

PATIENT
  Age: 40 Year
  Sex: Male

DRUGS (1)
  1. SOTALOL. [Suspect]
     Active Substance: SOTALOL
     Indication: PRODUCT USED FOR UNKNOWN INDICATION
     Dosage: 100DF, 1X, NOT THE PRESCRIBED AMOUNT ORAL

REACTIONS (8)
  - Sinus bradycardia [None]
  - Cardiac arrest [None]
  - Intentional overdose [None]
  - Torsade de pointes [None]
  - Blood pressure decreased [None]
  - Electrocardiogram QT prolonged [None]
  - Loss of consciousness [None]
  - Ventricular fibrillation [None]
